FAERS Safety Report 19103715 (Version 1)
Quarter: 2021Q2

REPORT INFORMATION
  Report Type: Spontaneous
  Country: NL (occurrence: NL)
  Receive Date: 20210407
  Receipt Date: 20210407
  Transmission Date: 20210717
  Serious: Yes (Hospitalization)
  Sender: FDA-Public Use
  Company Number: NL-PFIZER INC-2021333903

PATIENT
  Age: 79 Year
  Sex: Female

DRUGS (6)
  1. PALBOCICLIB [Suspect]
     Active Substance: PALBOCICLIB
     Dosage: 125 MG
     Dates: start: 20190701, end: 201909
  2. PALBOCICLIB [Suspect]
     Active Substance: PALBOCICLIB
     Dosage: 100 MG
     Dates: start: 201909, end: 2019
  3. PALBOCICLIB [Suspect]
     Active Substance: PALBOCICLIB
     Dosage: UNK
     Dates: start: 20191227, end: 20191231
  4. PALBOCICLIB [Suspect]
     Active Substance: PALBOCICLIB
     Dosage: UNK
     Dates: start: 20190703, end: 20190705
  5. EXEMESTAAN [Concomitant]
     Active Substance: EXEMESTANE
  6. PALBOCICLIB [Suspect]
     Active Substance: PALBOCICLIB
     Dosage: 125 MG
     Dates: end: 20201124

REACTIONS (4)
  - Hyperkalaemia [Unknown]
  - Renal impairment [Unknown]
  - Infection [Unknown]
  - Delirium [Unknown]

NARRATIVE: CASE EVENT DATE: 201907
